FAERS Safety Report 7631973-1 (Version None)
Quarter: 2011Q3

REPORT INFORMATION
  Report Type: 
  Country: None (occurrence: None)
  Receive Date: 20110725
  Receipt Date: 20110518
  Transmission Date: 20111222
  Serious: No
  Sender: FDA-Public Use
  Company Number: US-BRISTOL-MYERS SQUIBB COMPANY-15754625

PATIENT
  Age: 53 Year
  Sex: Female

DRUGS (9)
  1. SINGULAIR [Concomitant]
  2. XANAX [Concomitant]
  3. SPIRIVA [Concomitant]
  4. THEO-DUR [Concomitant]
  5. COUMADIN [Suspect]
     Dosage: 1DF=5 MG FIVE DAYS IN THE WEEK AND 7.5 MG THE OTHER TWO DAYS IN THE WEEK
     Dates: start: 20050101
  6. FLUNISOLIDE [Concomitant]
  7. AVAPRO [Concomitant]
  8. ADVAIR DISKUS 100/50 [Concomitant]
  9. ALBUTEROL SULFATE AUTOHALER [Concomitant]

REACTIONS (1)
  - ALOPECIA [None]
